FAERS Safety Report 4991928-2 (Version None)
Quarter: 2006Q2

REPORT INFORMATION
  Report Type: 
  Country: None (occurrence: None)
  Receive Date: 20060504
  Receipt Date: 20060117
  Transmission Date: 20061013
  Serious: Yes (Hospitalization, Other)
  Sender: FDA-Public Use
  Company Number: US-MERCK-0601USA02238

PATIENT
  Age: 65 Year
  Sex: Female
  Weight: 89 kg

DRUGS (15)
  1. METOPROLOL SUCCINATE [Concomitant]
     Indication: HYPERTENSION
     Route: 065
     Dates: start: 19990318
  2. CATAPRES [Concomitant]
     Indication: HYPERTENSION
     Route: 065
     Dates: start: 19990318
  3. TYLENOL (CAPLET) [Concomitant]
     Indication: OSTEOARTHRITIS
     Route: 065
     Dates: start: 20031010
  4. VIOXX [Suspect]
     Indication: OSTEOARTHRITIS
     Route: 048
     Dates: start: 20001010, end: 20020225
  5. PLAVIX [Concomitant]
     Indication: CORONARY ARTERY DISEASE
     Route: 065
     Dates: start: 20030818
  6. PLAVIX [Concomitant]
     Indication: GASTROOESOPHAGEAL REFLUX DISEASE
     Route: 065
     Dates: start: 20030818
  7. CAPTOPRIL MSD [Concomitant]
     Route: 065
  8. ASPIRIN [Concomitant]
     Indication: CEREBROVASCULAR ACCIDENT PROPHYLAXIS
     Route: 065
     Dates: start: 20010901, end: 20021201
  9. CELEBREX [Concomitant]
     Route: 065
     Dates: start: 20000501, end: 20001001
  10. BEXTRA [Concomitant]
     Route: 065
     Dates: start: 20030801
  11. ATENOL [Concomitant]
     Route: 065
  12. LIPITOR [Concomitant]
     Indication: HYPERCHOLESTEROLAEMIA
     Route: 065
     Dates: start: 20001010
  13. AVALIDE [Concomitant]
     Route: 065
  14. GLUCOPHAGE [Concomitant]
     Indication: DIABETES MELLITUS NON-INSULIN-DEPENDENT
     Route: 065
  15. DIOVAN [Concomitant]
     Indication: HYPERTENSION
     Route: 065
     Dates: start: 19990318

REACTIONS (13)
  - ABDOMINAL PAIN UPPER [None]
  - ARTHROPATHY [None]
  - CEREBROVASCULAR ACCIDENT [None]
  - CORONARY ARTERY DISEASE [None]
  - DEMENTIA ALZHEIMER'S TYPE [None]
  - GALLBLADDER DISORDER [None]
  - GASTROOESOPHAGEAL REFLUX DISEASE [None]
  - HYPERCHOLESTEROLAEMIA [None]
  - NECK PAIN [None]
  - PERSONALITY CHANGE [None]
  - SINUS ARRHYTHMIA [None]
  - TRANSIENT ISCHAEMIC ATTACK [None]
  - VOMITING [None]
